FAERS Safety Report 5265574-X (Version None)
Quarter: 2007Q1

REPORT INFORMATION
  Report Type: 
  Country: None (occurrence: None)
  Receive Date: 20061213
  Receipt Date: 20040601
  Transmission Date: 20070707
  Serious: Yes (Other)
  Sender: FDA-Public Use
  Company Number: 2004UW08029

PATIENT
  Age: 61 Year
  Sex: Female
  Weight: 76.2043 kg

DRUGS (1)
  1. IRESSA [Suspect]
     Indication: ADENOSQUAMOUS CELL LUNG CANCER
     Dosage: 250 MG QD PO
     Route: 048

REACTIONS (1)
  - HYPERSENSITIVITY [None]
